FAERS Safety Report 4817008-4 (Version None)
Quarter: 2005Q4

REPORT INFORMATION
  Report Type: 
  Country: None (occurrence: None)
  Receive Date: 20051101
  Receipt Date: 20030806
  Transmission Date: 20060501
  Serious: Yes (Hospitalization)
  Sender: FDA-Public Use
  Company Number: JP-GLAXOSMITHKLINE-B0306553A

PATIENT
  Age: 70 Year
  Sex: Female
  Weight: 62 kg

DRUGS (7)
  1. ZANTAC [Suspect]
     Dosage: 150MG PER DAY
     Route: 048
     Dates: start: 20030729, end: 20030730
  2. VECURONIUM BROMIDE [Suspect]
     Dosage: 8MG PER DAY
     Route: 042
     Dates: start: 20030730, end: 20030730
  3. VECURONIUM BROMIDE [Suspect]
     Dosage: 3MG PER DAY
     Route: 042
     Dates: start: 20030730, end: 20030730
  4. PROPOFOL [Suspect]
     Dosage: 80MG PER DAY
     Route: 042
     Dates: start: 20030730, end: 20030730
  5. SEVOFLURANE [Suspect]
     Route: 055
     Dates: start: 20030730, end: 20030730
  6. FENTANYL CITRATE [Concomitant]
     Dosage: 100MCG PER DAY
     Route: 042
     Dates: start: 20030730, end: 20030730
  7. MEPIVACAINE HCL [Concomitant]
     Dosage: 10MG PER DAY
     Route: 008
     Dates: start: 20030730, end: 20030730

REACTIONS (5)
  - BLOOD CREATINE PHOSPHOKINASE INCREASED [None]
  - HAEMATURIA [None]
  - MYOGLOBIN BLOOD INCREASED [None]
  - MYOGLOBINURIA [None]
  - RHABDOMYOLYSIS [None]
